FAERS Safety Report 6163340-4 (Version None)
Quarter: 2009Q2

REPORT INFORMATION
  Report Type: 
  Country: None (occurrence: None)
  Receive Date: 20090420
  Receipt Date: 20090414
  Transmission Date: 20091009
  Serious: Yes (Hospitalization, Other)
  Sender: FDA-Public Use
  Company Number: 2009SP000854

PATIENT
  Age: 26 Year
  Sex: Female

DRUGS (3)
  1. AERIUS (DESLORATADINE) (DESLORATADINE) [Suspect]
     Indication: RHINITIS ALLERGIC
     Dosage: PO
     Route: 048
     Dates: start: 20090110, end: 20090113
  2. RHINOCORT (CON.) [Concomitant]
  3. MINIDRIL (CON.) [Concomitant]

REACTIONS (5)
  - DIARRHOEA [None]
  - GAIT DISTURBANCE [None]
  - INSOMNIA [None]
  - MYOSITIS [None]
  - PHLEBITIS [None]
